FAERS Safety Report 6289346-2 (Version None)
Quarter: 2009Q3

REPORT INFORMATION
  Report Type: 
  Country: None (occurrence: None)
  Receive Date: 20090728
  Receipt Date: 20090728
  Transmission Date: 20100115
  Serious: Yes (Life-Threatening)
  Sender: FDA-Public Use
  Company Number: None

PATIENT
  Age: 42 Year
  Sex: Male

DRUGS (1)
  1. LEVOFLOXACIN [Suspect]
     Dosage: 750 MG ONCE DAILY IV  ONE DOSE
     Route: 042

REACTIONS (2)
  - ANGIOEDEMA [None]
  - RASH [None]
